FAERS Safety Report 5604591-4 (Version None)
Quarter: 2008Q1

REPORT INFORMATION
  Report Type: 
  Country: None (occurrence: None)
  Receive Date: 20080128
  Receipt Date: 20080117
  Transmission Date: 20080703
  Serious: Yes (Hospitalization, Other)
  Sender: FDA-Public Use
  Company Number: FR-ASTRAZENECA-2007CG01401

PATIENT
  Age: 61 Year
  Sex: Male
  Weight: 98 kg

DRUGS (5)
  1. CRESTOR [Suspect]
     Indication: HYPERCHOLESTEROLAEMIA
     Route: 048
     Dates: start: 20070322, end: 20070831
  2. AMLOR [Concomitant]
     Indication: HYPERTENSION
     Dates: start: 19970101
  3. FOZITEC [Concomitant]
     Indication: HYPERTENSION
     Dates: start: 19970101
  4. TAREG [Concomitant]
     Indication: HYPERTENSION
     Dates: start: 19970101
  5. ANTI-RETROVIRUS TRITHERAPY [Concomitant]

REACTIONS (2)
  - RENAL FAILURE ACUTE [None]
  - RHABDOMYOLYSIS [None]
